FAERS Safety Report 23795012 (Version 1)
Quarter: 2024Q2

REPORT INFORMATION
  Report Type: Spontaneous
  Country: PL (occurrence: PL)
  Receive Date: 20240429
  Receipt Date: 20240429
  Transmission Date: 20240716
  Serious: Yes (Life-Threatening, Hospitalization)
  Sender: FDA-Public Use
  Company Number: PL-TRIGEN LABORATORIES-2024ALO00179

PATIENT
  Age: 19 Year
  Sex: Male

DRUGS (6)
  1. METHYLPHENIDATE [Suspect]
     Active Substance: METHYLPHENIDATE
     Indication: Obsessive-compulsive symptom
  2. SERTRALINE [Suspect]
     Active Substance: SERTRALINE HYDROCHLORIDE
     Dosage: 200 MG, 1X/DAY
  3. VALPROIC ACID [Suspect]
     Active Substance: VALPROIC ACID
     Dosage: 1000 MG, 1X/DAY
  4. SULPIRIDE [Suspect]
     Active Substance: SULPIRIDE
     Dosage: 100 MG, 1X/DAY
  5. OLANZAPINE [Suspect]
     Active Substance: OLANZAPINE
  6. CLOMIPRAMINE [Suspect]
     Active Substance: CLOMIPRAMINE

REACTIONS (3)
  - Self-destructive behaviour [Recovered/Resolved]
  - Suicide attempt [Recovered/Resolved]
  - Thinking abnormal [Recovered/Resolved]
